FAERS Safety Report 15390346 (Version 1)
Quarter: 2018Q3

REPORT INFORMATION
  Report Type: Spontaneous
  Country: US (occurrence: US)
  Receive Date: 20180908
  Receipt Date: 20180908
  Transmission Date: 20181010
  Serious: Yes (Disabling, Other)
  Sender: FDA-Public Use
  Company Number: None

PATIENT
  Age: 44 Year
  Sex: Female
  Weight: 74.25 kg

DRUGS (2)
  1. COMPAZINE [Suspect]
     Active Substance: PROCHLORPERAZINE MALEATE
     Indication: POST LUMBAR PUNCTURE SYNDROME
     Dates: start: 20180627, end: 20180627
  2. BENZODIAZEPINE [Concomitant]
     Active Substance: BENZODIAZEPINE

REACTIONS (6)
  - Injection site pain [None]
  - Heart rate increased [None]
  - Tardive dyskinesia [None]
  - Panic attack [None]
  - Akathisia [None]
  - Impaired quality of life [None]

NARRATIVE: CASE EVENT DATE: 20180627
